FAERS Safety Report 4905368-5 (Version None)
Quarter: 2006Q1

REPORT INFORMATION
  Report Type: 
  Country: None (occurrence: None)
  Receive Date: 20060207
  Receipt Date: 20060207
  Transmission Date: 20060701
  Serious: No
  Sender: FDA-Public Use
  Company Number: None

PATIENT
  Age: 38 Year
  Sex: Male
  Weight: 58.9676 kg

DRUGS (1)
  1. ERTAPENEM 1 GM VIAL MERCK [Suspect]
     Indication: OSTEOMYELITIS
     Dosage: 1GRAM DAILY IV DRIP
     Route: 041
     Dates: start: 20060131, end: 20060203

REACTIONS (1)
  - ANAEMIA [None]
